FAERS Safety Report 11509887 (Version 1)
Quarter: 2015Q3

REPORT INFORMATION
  Report Type: Spontaneous
  Country: US (occurrence: US)
  Receive Date: 20150915
  Receipt Date: 20150915
  Transmission Date: 20151125
  Serious: No
  Sender: FDA-Public Use
  Company Number: US-JNJFOC-20150617639

PATIENT
  Age: 57 Year
  Sex: Female
  Weight: 63.5 kg

DRUGS (6)
  1. SAW PALMETTO [Concomitant]
     Active Substance: SAW PALMETTO
     Indication: HAIR GROWTH ABNORMAL
     Route: 065
  2. MOTRIN IB [Suspect]
     Active Substance: IBUPROFEN
     Indication: BACK PAIN
     Route: 048
     Dates: start: 20150622, end: 20150622
  3. GARLIC CAPSULES [Concomitant]
     Indication: ANTIINFLAMMATORY THERAPY
     Dosage: COUPLE OF MONTHS
     Route: 065
  4. GARLIC CAPSULES [Concomitant]
     Indication: ANTIOXIDANT THERAPY
     Dosage: COUPLE OF MONTHS
     Route: 065
  5. KELP [Concomitant]
     Active Substance: KELP
     Indication: THYROID DISORDER
     Route: 065
  6. BIOTIN [Concomitant]
     Active Substance: BIOTIN
     Indication: HAIR GROWTH ABNORMAL
     Route: 065

REACTIONS (2)
  - Pruritus generalised [Recovering/Resolving]
  - Incorrect dose administered [Recovering/Resolving]

NARRATIVE: CASE EVENT DATE: 20150622
